FAERS Safety Report 6696950-6 (Version None)
Quarter: 2010Q2

REPORT INFORMATION
  Report Type: 
  Country: None (occurrence: None)
  Receive Date: 20100426
  Receipt Date: 20100419
  Transmission Date: 20101027
  Serious: Yes (Death, Hospitalization)
  Sender: FDA-Public Use
  Company Number: PHHO2010CN05106

PATIENT
  Sex: Male
  Weight: 60 kg

DRUGS (2)
  1. AFINITOR [Suspect]
     Indication: METASTATIC GASTRIC CANCER
     Dosage: BLINDED
     Route: 048
     Dates: start: 20100331, end: 20100408
  2. TRAMADOL HCL [Concomitant]
     Indication: ABDOMINAL PAIN

REACTIONS (11)
  - ANAEMIA [None]
  - CONVULSION [None]
  - DECREASED APPETITE [None]
  - GASTROINTESTINAL HAEMORRHAGE [None]
  - GASTROINTESTINAL MOTILITY DISORDER [None]
  - HAEMATEMESIS [None]
  - HAEMOSTASIS [None]
  - INFREQUENT BOWEL MOVEMENTS [None]
  - METASTATIC GASTRIC CANCER [None]
  - THROMBOCYTOPENIA [None]
  - VOMITING [None]
